FAERS Safety Report 16464104 (Version 3)
Quarter: 2019Q3

REPORT INFORMATION
  Report Type: Report from Study
  Country: SE (occurrence: SE)
  Receive Date: 20190621
  Receipt Date: 20190718
  Transmission Date: 20191004
  Serious: Yes (Life-Threatening, Hospitalization, Disabling)
  Sender: FDA-Public Use
  Company Number: SE-UNITED THERAPEUTICS-UNT-2019-008249

PATIENT
  Age: 64 Year
  Sex: Male
  Weight: 78 kg

DRUGS (35)
  1. ENALAPRIL SANDOZ [Concomitant]
     Active Substance: ENALAPRIL
     Indication: MYOCARDIAL ISCHAEMIA
  2. DIMOR [Concomitant]
     Active Substance: LOPERAMIDE
     Indication: PRODUCT USED FOR UNKNOWN INDICATION
     Dosage: UNK
     Route: 065
  3. REVATIO [Concomitant]
     Active Substance: SILDENAFIL CITRATE
     Indication: PULMONARY VASCULAR DISORDER
  4. EPLERENONE. [Concomitant]
     Active Substance: EPLERENONE
     Indication: PULMONARY ARTERIAL HYPERTENSION
     Dosage: 25 MG, TOTAL DAILY DOSE
     Route: 065
  5. KALEORID [Concomitant]
     Active Substance: POTASSIUM CHLORIDE
     Indication: MINERAL SUPPLEMENTATION
     Dosage: 2 DF (8 AM), 1 DF (8 PM), DAILY
     Route: 065
     Dates: start: 20190213
  6. SIMVASTATIN SANDOZ [Concomitant]
     Active Substance: SIMVASTATIN
     Indication: BLOOD CHOLESTEROL INCREASED
     Dosage: 1 DF, QD (8 PM)
     Route: 065
     Dates: start: 20140514
  7. MIRTAZAPINE. [Concomitant]
     Active Substance: MIRTAZAPINE
     Indication: AFFECTIVE DISORDER
     Dosage: 1 DF, QD (AT NIGHT)
     Route: 065
     Dates: start: 20181212
  8. CANODERM [Concomitant]
     Active Substance: UREA
     Indication: DRY SKIN
     Dosage: 1 DOSE, PRN
     Route: 065
     Dates: start: 20150423
  9. PANTOPRAZOLE SODIUM. [Concomitant]
     Active Substance: PANTOPRAZOLE SODIUM
     Indication: PRODUCT USED FOR UNKNOWN INDICATION
     Dosage: UNK
     Route: 065
  10. UT-15C SR [Suspect]
     Active Substance: TREPROSTINIL DIOLAMINE
     Dosage: UNK
     Route: 048
     Dates: start: 20161213
  11. PREDNISOLON ALTERNOVA [Concomitant]
     Active Substance: PREDNISOLONE
     Indication: ARTHRITIS
  12. EPLERENONE BLUEFISH [Concomitant]
     Indication: PRODUCT USED FOR UNKNOWN INDICATION
     Dosage: 2 DF, QD (8 AM)
     Route: 065
     Dates: start: 20181212
  13. ENALAPRIL SANDOZ [Concomitant]
     Active Substance: ENALAPRIL
     Indication: HYPERTENSION
     Dosage: 0.5 DF, QD (8 AM)
     Route: 065
     Dates: start: 20181107
  14. SIMVASTATIN SANDOZ [Concomitant]
     Active Substance: SIMVASTATIN
     Indication: MYOCARDIAL ISCHAEMIA
  15. ESCITALOPRAM [Concomitant]
     Active Substance: ESCITALOPRAM OXALATE
     Indication: DEPRESSION
     Dosage: 1 DF, QD (8 AM)
     Route: 065
     Dates: start: 20170110
  16. FRAGMIN [Concomitant]
     Active Substance: DALTEPARIN SODIUM
     Indication: PRODUCT USED FOR UNKNOWN INDICATION
     Dosage: UNK
     Route: 065
  17. EPLERENONE. [Concomitant]
     Active Substance: EPLERENONE
     Indication: CARDIAC FAILURE
  18. FUROSEMIDE. [Concomitant]
     Active Substance: FUROSEMIDE
     Indication: CARDIAC FAILURE
     Dosage: 80 MG, TOTAL DAILY DOSE
     Route: 065
  19. ASA [Concomitant]
     Active Substance: ASPIRIN
     Indication: MYOCARDIAL ISCHAEMIA
     Dosage: 75MG, TOTAL DAILY DOSE
     Route: 065
  20. OMEPRAZOLE TEVA [OMEPRAZOLE] [Concomitant]
     Indication: GASTRIC ULCER
     Dosage: 1 DF, QD
     Route: 065
     Dates: start: 20190509
  21. BETNOVAT MED CHINOFORM [Concomitant]
     Indication: PRODUCT USED FOR UNKNOWN INDICATION
     Dosage: 1 DOSE, PRN
     Route: 065
     Dates: start: 20150114
  22. EZETIMIB KRKA [Concomitant]
     Indication: BLOOD CHOLESTEROL INCREASED
     Dosage: 1 DF, QD (8 AM)
     Route: 065
     Dates: start: 20181212
  23. METOPROLOL SANDOZ [METOPROLOL SUCCINATE] [Concomitant]
     Indication: MYOCARDIAL ISCHAEMIA
     Dosage: 25 MG, TOTAL DAILY DOSE
     Route: 065
  24. UT-15C SR [Suspect]
     Active Substance: TREPROSTINIL DIOLAMINE
     Indication: PULMONARY ARTERIAL HYPERTENSION
     Dosage: 8.75 MG, TID
     Route: 048
     Dates: start: 20190424, end: 20190507
  25. REVATIO [Concomitant]
     Active Substance: SILDENAFIL CITRATE
     Indication: PULMONARY ARTERIAL HYPERTENSION
     Dosage: 1 DF, TID
     Route: 065
  26. PREDNISOLON ALTERNOVA [Concomitant]
     Active Substance: PREDNISOLONE
     Indication: RHEUMATIC DISORDER
     Dosage: 1.5 DF, QD (8 AM)
     Route: 065
     Dates: start: 20181212
  27. TROMBYL [Concomitant]
     Active Substance: ASPIRIN
     Indication: ANTICOAGULANT THERAPY
     Dosage: 1 DF, QD (8 AM)
     Route: 065
     Dates: start: 20140514
  28. FOLIC ACID. [Concomitant]
     Active Substance: FOLIC ACID
     Indication: VITAMIN SUPPLEMENTATION
     Dosage: 2 DF, QWK
     Route: 065
     Dates: start: 20180208
  29. BETNOVAT [BETAMETHASONE VALERATE] [Concomitant]
     Indication: RASH
     Dosage: 1 DOSE, PRN
     Route: 065
     Dates: start: 20150423
  30. FURIX [CEFUROXIME] [Concomitant]
     Indication: DIURETIC THERAPY
     Dosage: 1 DF (8 AM), 1 DF (2 PM), DAILY
     Route: 065
     Dates: start: 20181026
  31. ALLOPURINOL NORDIC DRUGS [Concomitant]
     Active Substance: ALLOPURINOL
     Indication: GOUT
     Dosage: 1 DF, QD (8 AM)
     Route: 065
     Dates: start: 20180313
  32. ALVEDON [Concomitant]
     Active Substance: ACETAMINOPHEN
     Indication: PRODUCT USED FOR UNKNOWN INDICATION
     Dosage: 1 DF, PRN
     Route: 065
     Dates: start: 20141114
  33. ATARAX [Concomitant]
     Active Substance: HYDROXYZINE HYDROCHLORIDE
     Indication: FEELING ABNORMAL
     Dosage: 1 DF, PRN
     Route: 065
     Dates: start: 20150513
  34. GLYPRESSIN [Concomitant]
     Active Substance: TERLIPRESSIN
     Indication: PRODUCT USED FOR UNKNOWN INDICATION
     Dosage: UNK
     Route: 065
  35. CEFOTAXIM VILLERTON [Concomitant]
     Indication: PRODUCT USED FOR UNKNOWN INDICATION
     Dosage: UNK
     Route: 065

REACTIONS (2)
  - Hepatic cirrhosis [Not Recovered/Not Resolved]
  - Gastric varices haemorrhage [Recovered/Resolved]

NARRATIVE: CASE EVENT DATE: 20190507
